FAERS Safety Report 9112661 (Version 7)
Quarter: 2014Q1

REPORT INFORMATION
  Report Type: Spontaneous
  Country: US (occurrence: US)
  Receive Date: 20130211
  Receipt Date: 20140218
  Transmission Date: 20141002
  Serious: Yes (Hospitalization, Other)
  Sender: FDA-Public Use
  Company Number: US-009507513-1302USA004244

PATIENT
  Sex: Female
  Weight: 72.11 kg

DRUGS (13)
  1. FOSAMAX [Suspect]
     Indication: OSTEOPOROSIS
     Dosage: 70 MG, QW
     Route: 048
     Dates: start: 2002, end: 200512
  2. FOSAMAX [Suspect]
     Dosage: 70 MG, QW
     Route: 048
     Dates: start: 200704, end: 200712
  3. FOSAMAX PLUS D [Suspect]
     Indication: OSTEOPOROSIS PROPHYLAXIS
     Dosage: 70 MG, QW
     Route: 048
     Dates: start: 200604, end: 200703
  4. FOSAMAX PLUS D [Suspect]
     Dosage: 70 MG, QW
     Route: 048
     Dates: start: 200801, end: 200812
  5. ALENDRONATE SODIUM [Suspect]
     Indication: OSTEOPOROSIS
     Dosage: 70 MG, UNK
     Route: 048
     Dates: start: 20090114, end: 20100921
  6. VITAMINS (UNSPECIFIED) [Concomitant]
     Dosage: 1 UNK, QD
     Dates: start: 1979, end: 2011
  7. CALCIUM (UNSPECIFIED) [Concomitant]
     Dosage: 1200 MG, BID
     Dates: start: 1979
  8. PREVACID [Concomitant]
     Dosage: 30 MG, QD
     Dates: start: 200402, end: 200904
  9. NITROGLYCERIN [Concomitant]
     Indication: CARDIAC DISORDER
     Dosage: 0.4 MG, QH
     Dates: start: 200607
  10. TRANSIDERM-NITRO [Concomitant]
     Indication: CARDIAC DISORDER
     Dosage: UNK
     Dates: start: 20010407, end: 200606
  11. ASPIRIN [Concomitant]
     Dosage: 325 MG, QD
  12. HYDROCHLOROTHIAZIDE [Concomitant]
     Dosage: 25 MG, QD
  13. XALATAN [Concomitant]

REACTIONS (57)
  - Femur fracture [Unknown]
  - Open reduction of fracture [Unknown]
  - Humerus fracture [Unknown]
  - Skin cancer [Unknown]
  - Paraesthesia [Unknown]
  - Impaired healing [Unknown]
  - Joint injury [Unknown]
  - Depression [Unknown]
  - Fall [Unknown]
  - Ankle fracture [Unknown]
  - Gallbladder operation [Unknown]
  - Hysterectomy [Unknown]
  - Hernia repair [Unknown]
  - Female genital operation [Unknown]
  - Fall [Unknown]
  - Radius fracture [Unknown]
  - Glaucoma [Unknown]
  - Angina pectoris [Unknown]
  - Aortic stenosis [Unknown]
  - Bladder neck suspension [Unknown]
  - Cystopexy [Unknown]
  - Fall [Unknown]
  - Haematocrit decreased [Unknown]
  - Pain [Unknown]
  - Urinary tract infection [Unknown]
  - Leukopenia [Unknown]
  - Asthma [Unknown]
  - Arteriosclerosis coronary artery [Unknown]
  - Kyphosis [Unknown]
  - Dyspnoea [Unknown]
  - Anxiety [Unknown]
  - Pelvic pain [Unknown]
  - Tongue dry [Unknown]
  - Colon adenoma [Unknown]
  - Diverticulum intestinal [Unknown]
  - Chest pain [Unknown]
  - Irritable bowel syndrome [Unknown]
  - Adverse drug reaction [Unknown]
  - Dry mouth [Unknown]
  - Anaemia [Unknown]
  - Musculoskeletal discomfort [Unknown]
  - Electrocardiogram ST-T segment abnormal [Unknown]
  - Arterial stenosis [Unknown]
  - Systolic hypertension [Unknown]
  - Vitamin D deficiency [Unknown]
  - Cardiac disorder [Unknown]
  - Angina unstable [Unknown]
  - Angioplasty [Unknown]
  - Arthralgia [Unknown]
  - Back pain [Unknown]
  - Nausea [Unknown]
  - Constipation [Not Recovered/Not Resolved]
  - Diarrhoea [Unknown]
  - Musculoskeletal pain [Unknown]
  - Nausea [Unknown]
  - Retching [Unknown]
  - Dizziness [Unknown]
